FAERS Safety Report 8111223-2 (Version None)
Quarter: 2012Q1

REPORT INFORMATION
  Report Type: 
  Country: None (occurrence: None)
  Receive Date: 20120203
  Receipt Date: 20110630
  Transmission Date: 20120608
  Serious: No
  Sender: FDA-Public Use
  Company Number: US-GLAXOSMITHKLINE-A0933989A

PATIENT
  Age: 52 Year
  Sex: Female

DRUGS (6)
  1. LAMICTAL [Suspect]
     Indication: BIPOLAR DISORDER
     Dosage: 150MG PER DAY
     Route: 048
     Dates: start: 20040101
  2. VITAMIN D [Concomitant]
  3. RAPAFLO [Concomitant]
  4. AMBIEN [Concomitant]
  5. PRAVASTATIN [Suspect]
     Route: 048
  6. ESTROGEN CREAM [Concomitant]

REACTIONS (1)
  - CONSTIPATION [None]
